FAERS Safety Report 12333633 (Version 1)
Quarter: 2016Q2

REPORT INFORMATION
  Report Type: Spontaneous
  Country: US (occurrence: US)
  Receive Date: 20160504
  Receipt Date: 20160504
  Transmission Date: 20160815
  Serious: No
  Sender: FDA-Public Use
  Company Number: US-ROCHE-ITM201505IM016241

PATIENT
  Age: 72 Year
  Sex: Female
  Weight: 108.96 kg

DRUGS (2)
  1. ESBRIET [Suspect]
     Active Substance: PIRFENIDONE
     Indication: IDIOPATHIC PULMONARY FIBROSIS
     Route: 048
     Dates: start: 20141226
  2. ESBRIET [Suspect]
     Active Substance: PIRFENIDONE
     Dosage: DOSE REDUCED
     Route: 048
     Dates: end: 20150930

REACTIONS (10)
  - Vomiting [Unknown]
  - Rash [Unknown]
  - Gastrooesophageal reflux disease [Unknown]
  - Gastric disorder [Unknown]
  - Joint lock [Not Recovered/Not Resolved]
  - Erythema [Unknown]
  - Arthralgia [Unknown]
  - Abdominal pain upper [Unknown]
  - Pruritus [Unknown]
  - Joint swelling [Unknown]

NARRATIVE: CASE EVENT DATE: 20141226
